FAERS Safety Report 4314142-2 (Version None)
Quarter: 2004Q1

REPORT INFORMATION
  Report Type: 
  Country: None (occurrence: None)
  Receive Date: 20040308
  Receipt Date: 20040308
  Transmission Date: 20041129
  Serious: Yes (Hospitalization)
  Sender: FDA-Public Use
  Company Number: None

PATIENT
  Age: 67 Year
  Sex: Male
  Weight: 96.6162 kg

DRUGS (4)
  1. ETHYOL 500 MG SQ QD [Suspect]
     Indication: PROPHYLACTIC CHEMOTHERAPY
     Dosage: 500 MG SQ
     Route: 058
     Dates: start: 20040225, end: 20040227
  2. ETHYOL 500 MG SQ QD [Suspect]
     Indication: PROPHYLACTIC CHEMOTHERAPY
     Dosage: 500 MG SQ
     Route: 058
     Dates: start: 20040301
  3. PACLITAXEL [Concomitant]
  4. CARBOPLATIN [Concomitant]

REACTIONS (3)
  - BODY TEMPERATURE INCREASED [None]
  - CHEST X-RAY ABNORMAL [None]
  - CHILLS [None]
